FAERS Safety Report 20115082 (Version 1)
Quarter: 2021Q4

REPORT INFORMATION
  Report Type: Spontaneous
  Country: CA (occurrence: CA)
  Receive Date: 20211125
  Receipt Date: 20211125
  Transmission Date: 20220303
  Serious: Yes (Other)
  Sender: FDA-Public Use
  Company Number: CA-BoehringerIngelheim-2021-BI-140426

PATIENT
  Age: 71 Year
  Sex: Female

DRUGS (1)
  1. JARDIANCE [Suspect]
     Active Substance: EMPAGLIFLOZIN
     Indication: Product used for unknown indication
     Route: 065

REACTIONS (5)
  - Euglycaemic diabetic ketoacidosis [Unknown]
  - Nausea [Unknown]
  - Neutrophil count increased [Unknown]
  - Vomiting [Unknown]
  - White blood cell count increased [Unknown]
